FAERS Safety Report 13945973 (Version 2)
Quarter: 2018Q1

REPORT INFORMATION
  Report Type: Spontaneous
  Country: US (occurrence: US)
  Receive Date: 20170907
  Receipt Date: 20180104
  Transmission Date: 20180508
  Serious: Yes (Hospitalization, Other)
  Sender: FDA-Public Use
  Company Number: US-DSJP-DSU-2017-135462

PATIENT

DRUGS (2)
  1. BENICAR [Suspect]
     Active Substance: OLMESARTAN MEDOXOMIL
     Indication: PRODUCT USED FOR UNKNOWN INDICATION
     Dosage: 40 MG, QD
     Route: 048
     Dates: start: 20120612
  2. BENICAR HCT [Suspect]
     Active Substance: HYDROCHLOROTHIAZIDE\OLMESARTAN MEDOXOMIL
     Indication: PRODUCT USED FOR UNKNOWN INDICATION
     Dosage: 40-12.5 MG, QD
     Route: 048
     Dates: end: 20170203

REACTIONS (11)
  - Weight decreased [Unknown]
  - Dehydration [Recovered/Resolved]
  - Hyponatraemia [Unknown]
  - Gastrooesophageal reflux disease [Recovering/Resolving]
  - Rectal haemorrhage [Unknown]
  - Cholelithiasis [Unknown]
  - Chronic gastritis [Unknown]
  - Diverticulitis [Recovering/Resolving]
  - Diverticulum [Unknown]
  - Irritable bowel syndrome [Unknown]
  - Acute kidney injury [Recovering/Resolving]

NARRATIVE: CASE EVENT DATE: 201207
